FAERS Safety Report 7457183-9 (Version None)
Quarter: 2011Q2

REPORT INFORMATION
  Report Type: 
  Country: None (occurrence: None)
  Receive Date: 20110504
  Receipt Date: 20110502
  Transmission Date: 20111010
  Serious: Yes (Other)
  Sender: FDA-Public Use
  Company Number: US-PFIZER INC-2011094861

PATIENT
  Age: 89 Year
  Sex: Male
  Weight: 43.084 kg

DRUGS (5)
  1. PREDNISONE [Concomitant]
     Indication: LEUKAEMIA
     Dosage: 10 MG, 1X/DAY
     Dates: start: 20100507
  2. LASIX [Concomitant]
     Indication: DIURETIC THERAPY
     Dosage: 40 MG, ALTERNATE DAY
     Route: 048
     Dates: start: 20100507
  3. KLOR-CON [Concomitant]
     Indication: MINERAL SUPPLEMENTATION
     Dosage: UNK
     Route: 048
     Dates: start: 20100507
  4. LYRICA [Suspect]
     Indication: PAIN
     Dosage: 50 MG, 3X/DAY
     Route: 048
     Dates: start: 20110401
  5. DIGOXIN [Concomitant]
     Indication: CARDIAC DISORDER
     Dosage: 0.0125 MG, 1X/DAY
     Route: 048
     Dates: start: 20100507

REACTIONS (1)
  - DIZZINESS [None]
